FAERS Safety Report 16579969 (Version 1)
Quarter: 2019Q3

REPORT INFORMATION
  Report Type: Spontaneous
  Country: US (occurrence: US)
  Receive Date: 20190716
  Receipt Date: 20190716
  Transmission Date: 20191004
  Serious: Yes (Hospitalization, Disabling, Other)
  Sender: FDA-Public Use
  Company Number: US-JNJFOC-20190706585

PATIENT
  Age: 74 Year
  Sex: Male

DRUGS (1)
  1. INVOKANA [Suspect]
     Active Substance: CANAGLIFLOZIN
     Indication: PRODUCT USED FOR UNKNOWN INDICATION
     Route: 048

REACTIONS (7)
  - Acute kidney injury [Unknown]
  - Gangrene [Unknown]
  - Skin ulcer [Unknown]
  - Cellulitis [Unknown]
  - Osteomyelitis [Unknown]
  - Postoperative wound infection [Unknown]
  - Limb amputation [Unknown]

NARRATIVE: CASE EVENT DATE: 20141215
